FAERS Safety Report 18087140 (Version 1)
Quarter: 2020Q3

REPORT INFORMATION
  Report Type: Spontaneous
  Country: US (occurrence: US)
  Receive Date: 20200729
  Receipt Date: 20200729
  Transmission Date: 20201103
  Serious: No
  Sender: FDA-Public Use
  Company Number: None

PATIENT
  Sex: Female

DRUGS (1)
  1. TAMOXIFEN [Suspect]
     Active Substance: TAMOXIFEN
     Route: 048

REACTIONS (4)
  - Aggression [None]
  - Agitation [None]
  - Abnormal behaviour [None]
  - Dementia [None]

NARRATIVE: CASE EVENT DATE: 20200310
